FAERS Safety Report 4708178-7 (Version None)
Quarter: 2005Q2

REPORT INFORMATION
  Report Type: 
  Country: None (occurrence: None)
  Receive Date: 20050629
  Receipt Date: 20050516
  Transmission Date: 20051028
  Serious: No
  Sender: FDA-Public Use
  Company Number: 05P-163-0300344-00

PATIENT
  Age: 72 Year
  Sex: Female
  Weight: 68.0396 kg

DRUGS (8)
  1. HUMIRA [Suspect]
     Indication: RHEUMATOID ARTHRITIS
     Dosage: 40 MG, 1 IN 2 WK, SUBCUTANEOUS;  40 MG, 1 IN 1 WK, SUBCUTANEOUS
     Route: 058
     Dates: start: 20040820, end: 20050301
  2. HUMIRA [Suspect]
     Indication: RHEUMATOID ARTHRITIS
     Dosage: 40 MG, 1 IN 2 WK, SUBCUTANEOUS;  40 MG, 1 IN 1 WK, SUBCUTANEOUS
     Route: 058
     Dates: start: 20050301
  3. RISEDRONATE SODIUM [Concomitant]
  4. LEVOTHYROXINE SODIUM [Concomitant]
  5. LANSOPRAZOLE [Concomitant]
  6. PROPRANOLOL HYDROCHLORIDE [Concomitant]
  7. LOSARTAN POTASSIUM [Concomitant]
  8. TRAMADOL HCL [Concomitant]

REACTIONS (5)
  - ARTHRITIS [None]
  - BRONCHITIS [None]
  - COUGH [None]
  - DYSPNOEA [None]
  - FATIGUE [None]
